FAERS Safety Report 17528692 (Version 1)
Quarter: 2020Q1

REPORT INFORMATION
  Report Type: Spontaneous
  Country: US (occurrence: US)
  Receive Date: 20200311
  Receipt Date: 20200311
  Transmission Date: 20200409
  Serious: No
  Sender: FDA-Public Use
  Company Number: US-BAXTER-2020BAX005123

PATIENT

DRUGS (4)
  1. PIPERACILLIN. [Suspect]
     Active Substance: PIPERACILLIN SODIUM
     Indication: LEUKOCYTOSIS
     Route: 065
  2. VANCOMYCIN INJECTION, USP [Suspect]
     Active Substance: VANCOMYCIN
     Indication: LEUKOCYTOSIS
     Route: 065
  3. TAZOBACTAM [Suspect]
     Active Substance: TAZOBACTAM
     Indication: LEUKOCYTOSIS
     Route: 065
  4. FLUCONAZOLE INJECTION,USP (IN 0.9% SODIUM CHLORIDE INJECTION) [Suspect]
     Active Substance: FLUCONAZOLE
     Indication: LEUKOCYTOSIS
     Route: 065

REACTIONS (4)
  - Leukocytosis [Unknown]
  - Condition aggravated [Unknown]
  - Drug ineffective [Unknown]
  - Bacterial infection [Unknown]
